FAERS Safety Report 10265528 (Version 3)
Quarter: 2014Q3

REPORT INFORMATION
  Report Type: Report from Study
  Country: US (occurrence: US)
  Receive Date: 20140627
  Receipt Date: 20140728
  Transmission Date: 20150326
  Serious: Yes (Hospitalization)
  Sender: FDA-Public Use
  Company Number: US-ACTELION-A-US2014-96369

PATIENT
  Age: 78 Year
  Sex: Female

DRUGS (1)
  1. TRACLEER [Suspect]
     Active Substance: BOSENTAN\BOSENTAN MONOHYDRATE
     Indication: PULMONARY ARTERIAL HYPERTENSION
     Dosage: UNK
     Route: 048

REACTIONS (9)
  - Gastroenteritis viral [Unknown]
  - Atrial fibrillation [Recovering/Resolving]
  - Oesophageal obstruction [Unknown]
  - Cardiac disorder [Unknown]
  - Fatigue [Unknown]
  - Cardiac failure congestive [Recovering/Resolving]
  - Dyspnoea [Recovering/Resolving]
  - Coronary arterial stent insertion [Unknown]
  - Syncope [Unknown]

NARRATIVE: CASE EVENT DATE: 201405
